FAERS Safety Report 7297596-1 (Version None)
Quarter: 2011Q1

REPORT INFORMATION
  Report Type: 
  Country: None (occurrence: None)
  Receive Date: 20110216
  Receipt Date: 20110209
  Transmission Date: 20110831
  Serious: Yes (Hospitalization)
  Sender: FDA-Public Use
  Company Number: GR-CELGENEUS-066-C5013-10032396

PATIENT
  Sex: Female
  Weight: 70 kg

DRUGS (11)
  1. ASPIRIN [Concomitant]
     Indication: THROMBOSIS PROPHYLAXIS
     Route: 048
     Dates: start: 20090601
  2. CC-5013 [Suspect]
     Route: 048
     Dates: start: 20100528
  3. DEXAMETHASONE [Suspect]
     Route: 048
     Dates: start: 20100528
  4. VALACICLOVIR [Concomitant]
     Indication: INFECTION PROPHYLAXIS
     Route: 048
     Dates: start: 20090601
  5. CC-5013 [Suspect]
     Indication: MULTIPLE MYELOMA
     Route: 048
     Dates: start: 20090602
  6. DEXAMETHASONE [Suspect]
     Indication: PERIORBITAL OEDEMA
     Route: 048
     Dates: start: 20100315, end: 20100324
  7. DEXAMETHASONE [Suspect]
     Route: 048
     Dates: start: 20100408
  8. LEVODOPA AND BENSERAZIDE [Concomitant]
     Indication: PARKINSON'S DISEASE
     Route: 048
     Dates: start: 19990101
  9. DEXAMETHASONE [Suspect]
     Indication: MULTIPLE MYELOMA
     Route: 048
     Dates: start: 20090630
  10. MIRAPEXIN [Concomitant]
     Indication: PARKINSON'S DISEASE
     Route: 048
     Dates: start: 19990101
  11. CC-5013 [Suspect]
     Route: 048
     Dates: start: 20100315, end: 20100324

REACTIONS (3)
  - APHASIA [None]
  - PYRAMIDAL TRACT SYNDROME [None]
  - MENINGIOMA [None]
